FAERS Safety Report 8472810-5 (Version None)
Quarter: 2012Q2

REPORT INFORMATION
  Report Type: 
  Country: None (occurrence: None)
  Receive Date: 20120627
  Receipt Date: 20120622
  Transmission Date: 20120825
  Serious: No
  Sender: FDA-Public Use
  Company Number: US-PFIZER INC-2012150882

PATIENT
  Sex: Female

DRUGS (1)
  1. DIFLUCAN [Suspect]
     Dosage: 150 MG,DAILY
     Dates: start: 20120611, end: 20120618

REACTIONS (1)
  - VULVOVAGINAL DISCOMFORT [None]
